FAERS Safety Report 13181030 (Version 1)
Quarter: 2017Q1

REPORT INFORMATION
  Report Type: Spontaneous
  Country: US (occurrence: US)
  Receive Date: 20170202
  Receipt Date: 20170202
  Transmission Date: 20170428
  Serious: No
  Sender: FDA-Public Use
  Company Number: US-SMITH AND NEPHEW, INC-2016SMT00697

PATIENT
  Sex: Male
  Weight: 96.15 kg

DRUGS (2)
  1. UNSPECIFIED 20 MEDICATIONS [Concomitant]
  2. REGRANEX [Suspect]
     Active Substance: BECAPLERMIN
     Indication: DIABETIC ULCER
     Dosage: 1 DOSAGE UNITS, 2X/DAY
     Dates: start: 201607

REACTIONS (3)
  - Off label use [Unknown]
  - Application site pain [Unknown]
  - Drug ineffective [Unknown]

NARRATIVE: CASE EVENT DATE: 2016
